FAERS Safety Report 7248346-6 (Version None)
Quarter: 2011Q1

REPORT INFORMATION
  Report Type: 
  Country: None (occurrence: None)
  Receive Date: 20110127
  Receipt Date: 20110119
  Transmission Date: 20110831
  Serious: Yes (Other)
  Sender: FDA-Public Use
  Company Number: PHHY2011JP04468

PATIENT
  Age: 19 Year
  Sex: Female

DRUGS (1)
  1. CYCLOSPORINE [Suspect]
     Indication: NEPHROTIC SYNDROME
     Dosage: UNK

REACTIONS (4)
  - CHLAMYDIAL INFECTION [None]
  - FITZ-HUGH-CURTIS SYNDROME [None]
  - NEPHROTIC SYNDROME [None]
  - HEPATITIS [None]
